FAERS Safety Report 18124312 (Version 1)
Quarter: 2020Q3

REPORT INFORMATION
  Report Type: Spontaneous
  Country: CN (occurrence: CN)
  Receive Date: 20200807
  Receipt Date: 20200807
  Transmission Date: 20201103
  Serious: Yes (Other)
  Sender: FDA-Public Use
  Company Number: CN-BAYER-2020-153416

PATIENT
  Age: 78 Year
  Sex: Female
  Weight: 60 kg

DRUGS (2)
  1. AVELOX [Suspect]
     Active Substance: MOXIFLOXACIN HYDROCHLORIDE
     Indication: URINARY TRACT INFECTION FUNGAL
     Dosage: 0.4 G, QD
     Route: 042
     Dates: start: 20200710, end: 20200713
  2. ROCEPHIN [Concomitant]
     Active Substance: CEFTRIAXONE SODIUM
     Indication: URINARY TRACT INFECTION FUNGAL
     Dosage: UNK
     Dates: start: 20200708, end: 20200713

REACTIONS (9)
  - Muscle twitching [Recovering/Resolving]
  - Mental disorder [Recovering/Resolving]
  - Somnolence [Recovering/Resolving]
  - Muscle rigidity [Recovering/Resolving]
  - Delirium [Recovering/Resolving]
  - Breath sounds abnormal [Recovering/Resolving]
  - Off label use [None]
  - Altered state of consciousness [Recovering/Resolving]
  - Product use in unapproved indication [None]

NARRATIVE: CASE EVENT DATE: 20200710
